FAERS Safety Report 16000310 (Version 2)
Quarter: 2019Q3

REPORT INFORMATION
  Report Type: Spontaneous
  Country: PT (occurrence: PT)
  Receive Date: 20190225
  Receipt Date: 20190929
  Transmission Date: 20191004
  Serious: Yes (Other)
  Sender: FDA-Public Use
  Company Number: PT-B.I. PHARMACEUTICALS,INC./RIDGEFIELD-2019-12-000584

PATIENT
  Age: 70 Year
  Sex: Female

DRUGS (8)
  1. FLEXIBAN [Concomitant]
     Active Substance: CYCLOBENZAPRINE
     Indication: PAIN
     Dosage: COMPRIMIDO
     Route: 048
  2. GLUCOSAMINE [Concomitant]
     Active Substance: GLUCOSAMINE
     Indication: PRODUCT USED FOR UNKNOWN INDICATION
     Route: 048
  3. CORDARONE [Concomitant]
     Active Substance: AMIODARONE HYDROCHLORIDE
     Indication: PAIN
     Dosage: COMPRIMIDO
     Route: 048
  4. LOSARTAN AND HYDROCHLOROTHIAZIDE [Concomitant]
     Active Substance: HYDROCHLOROTHIAZIDE\LOSARTAN POTASSIUM
     Indication: HYPERTENSION
     Route: 048
  5. ALPRAZOLAM. [Concomitant]
     Active Substance: ALPRAZOLAM
     Indication: DEPRESSION
     Dosage: TIME INTERVAL: 1
     Route: 048
  6. PRADAXA [Suspect]
     Active Substance: DABIGATRAN ETEXILATE MESYLATE
     Indication: ARRHYTHMIA
     Route: 048
     Dates: start: 20190102
  7. CLONIX [CLONIXIN] [Concomitant]
     Indication: PAIN
     Dosage: SOS
     Route: 048
  8. AMLODIPINE [Concomitant]
     Active Substance: AMLODIPINE BESYLATE
     Indication: HYPERTENSION
     Route: 048

REACTIONS (5)
  - Pruritus [Unknown]
  - Face oedema [Unknown]
  - Headache [Unknown]
  - Hot flush [Unknown]
  - Nausea [Unknown]

NARRATIVE: CASE EVENT DATE: 20190202
